FAERS Safety Report 12512358 (Version 1)
Quarter: 2016Q2

REPORT INFORMATION
  Report Type: Spontaneous
  Country: US (occurrence: None)
  Receive Date: 20160629
  Receipt Date: 20160629
  Transmission Date: 20160815
  Serious: No
  Sender: FDA-Public Use
  Company Number: None

PATIENT
  Sex: Male

DRUGS (2)
  1. METFORMIN [Suspect]
     Active Substance: METFORMIN HYDROCHLORIDE
  2. HUMALOG [Suspect]
     Active Substance: INSULIN LISPRO

REACTIONS (8)
  - Blood glucose increased [None]
  - Decreased appetite [None]
  - Vertigo [None]
  - Dizziness [None]
  - Gait disturbance [None]
  - Weight decreased [None]
  - Renal disorder [None]
  - Balance disorder [None]
